FAERS Safety Report 22752305 (Version 9)
Quarter: 2024Q3

REPORT INFORMATION
  Report Type: Spontaneous
  Country: CA (occurrence: CA)
  Receive Date: 20230726
  Receipt Date: 20240930
  Transmission Date: 20241017
  Serious: Yes (Hospitalization, Other)
  Sender: PFIZER
  Company Number: CA-PFIZER INC-202201206626

PATIENT
  Age: 71 Year
  Sex: Female
  Weight: 69.15 kg

DRUGS (41)
  1. RUXIENCE [Suspect]
     Active Substance: RITUXIMAB-PVVR
     Indication: Scleroderma
     Dosage: 600 MG, WEEKLY IVX4 DOSES
     Route: 042
     Dates: start: 20221117
  2. RUXIENCE [Suspect]
     Active Substance: RITUXIMAB-PVVR
     Dosage: 600 MG, WEEKLY IVX4 DOSES
     Route: 042
     Dates: start: 20221117
  3. RUXIENCE [Suspect]
     Active Substance: RITUXIMAB-PVVR
     Dosage: 600 MG, WEEKLY IVX4 DOSES
     Route: 042
     Dates: start: 20221124
  4. RUXIENCE [Suspect]
     Active Substance: RITUXIMAB-PVVR
     Dosage: 600 MG, WEEKLY IVX4 DOSES
     Route: 042
     Dates: start: 20221124
  5. RUXIENCE [Suspect]
     Active Substance: RITUXIMAB-PVVR
     Dosage: 600 MG, WEEKLY IVX4 DOSES
     Route: 042
     Dates: start: 20221209
  6. RUXIENCE [Suspect]
     Active Substance: RITUXIMAB-PVVR
     Dosage: 600 MG, WEEKLY IVX4 DOSES
     Route: 042
     Dates: start: 20221209
  7. RUXIENCE [Suspect]
     Active Substance: RITUXIMAB-PVVR
     Dosage: 600 MG, WEEKLY, 4 DOSES 6 MONTHS AFTER LAST INFUSION
     Route: 042
     Dates: start: 20230826
  8. RUXIENCE [Suspect]
     Active Substance: RITUXIMAB-PVVR
     Dosage: 600 MG, WEEKLY,  4 DOSES 6 MONTHS AFTER LAST INFUSION
     Route: 042
     Dates: start: 20230909
  9. RUXIENCE [Suspect]
     Active Substance: RITUXIMAB-PVVR
     Dosage: 600 MG, WEEKLY, 4 DOSES 6 MONTHS AFTER LAST INFUSION
     Route: 042
     Dates: start: 20230909
  10. RUXIENCE [Suspect]
     Active Substance: RITUXIMAB-PVVR
     Dosage: 600 MG WEEKLY FOR 4 WEEKS (3 WEEKS AND 1 DAY AFTER LAST TREATMENT)
     Route: 042
     Dates: start: 20231001
  11. RUXIENCE [Suspect]
     Active Substance: RITUXIMAB-PVVR
     Dosage: 600 MG WEEKLY FOR 4 WEEKS (3 WEEKS AND 1 DAY AFTER LAST TREATMENT)
     Route: 042
     Dates: start: 20231001
  12. RUXIENCE [Suspect]
     Active Substance: RITUXIMAB-PVVR
     Dosage: 600 MG, WEEKLY (4 DOSES)
     Route: 042
     Dates: start: 20221117, end: 20221209
  13. RUXIENCE [Suspect]
     Active Substance: RITUXIMAB-PVVR
     Dosage: 600 MG, WEEKLY (4 DOSES 6 MONTHS AFTER LAST INFUSION)
     Route: 042
     Dates: start: 20230826, end: 20231001
  14. RUXIENCE [Suspect]
     Active Substance: RITUXIMAB-PVVR
     Dosage: 600 MG, WEEKLY X 4 DOSES
     Route: 042
     Dates: start: 20240501, end: 20240527
  15. RUXIENCE [Suspect]
     Active Substance: RITUXIMAB-PVVR
     Dosage: 600 MG, WEEKLY (4 DOSES 6 MONTHS AFTER LAST INFUSION)
     Route: 042
     Dates: start: 20240507
  16. RUXIENCE [Suspect]
     Active Substance: RITUXIMAB-PVVR
     Dosage: 600 MG, WEEKLY (4 DOSES 6 MONTHS AFTER LAST INFUSION)
     Route: 042
     Dates: start: 20240507
  17. RUXIENCE [Suspect]
     Active Substance: RITUXIMAB-PVVR
     Dosage: 600 MG WEEKLY (2 WEEKS)
     Route: 042
     Dates: start: 20240521
  18. RUXIENCE [Suspect]
     Active Substance: RITUXIMAB-PVVR
     Dosage: 600 MG WEEKLY (2 WEEKS)
     Route: 042
     Dates: start: 20240521
  19. RUXIENCE [Suspect]
     Active Substance: RITUXIMAB-PVVR
     Dosage: 600 MG, WEEKLY X 4 DOSES (600 MG, WEEKLY)
     Route: 042
     Dates: start: 20240527
  20. ACETAMINOPHEN [Concomitant]
     Active Substance: ACETAMINOPHEN
     Indication: Scleroderma
     Dosage: UNK
  21. ACETAMINOPHEN [Concomitant]
     Active Substance: ACETAMINOPHEN
     Indication: Premedication
     Dosage: UNK
     Dates: start: 20221209, end: 20221209
  22. ACETAMINOPHEN [Concomitant]
     Active Substance: ACETAMINOPHEN
     Dosage: UNK
     Dates: start: 20240527, end: 20240527
  23. BISOPROLOL [Concomitant]
     Active Substance: BISOPROLOL\BISOPROLOL FUMARATE
     Indication: Hypertension
     Dosage: UNK
  24. BISOPROLOL [Concomitant]
     Active Substance: BISOPROLOL\BISOPROLOL FUMARATE
     Dosage: 2.5 G, DAILY, IN THE PM
  25. DIPHENHYDRAMINE [Concomitant]
     Active Substance: DIPHENHYDRAMINE
     Indication: Scleroderma
     Dosage: UNK
  26. DIPHENHYDRAMINE [Concomitant]
     Active Substance: DIPHENHYDRAMINE
     Indication: Premedication
     Dosage: UNK
     Dates: start: 20221209, end: 20221209
  27. DIPHENHYDRAMINE [Concomitant]
     Active Substance: DIPHENHYDRAMINE
     Dosage: UNK
     Dates: start: 20240527, end: 20240527
  28. FUROSEMIDE [Concomitant]
     Active Substance: FUROSEMIDE
     Dosage: 20 MG, DAILY
  29. FUROSEMIDE [Concomitant]
     Active Substance: FUROSEMIDE
     Dosage: 20 MG, ALTERNATE DAY (EVERY SECOND DAY)
  30. FUROSEMIDE [Concomitant]
     Active Substance: FUROSEMIDE
     Dosage: UNK
  31. FUROSEMIDE [Concomitant]
     Active Substance: FUROSEMIDE
     Dosage: EVERY SECOND DAY PRN DEPENDING ON WEIGHT
  32. MAGNESIUM [Concomitant]
     Active Substance: MAGNESIUM
     Dosage: UNK
  33. MAGNESIUM CITRATE [Concomitant]
     Active Substance: MAGNESIUM CITRATE
     Dosage: 150 MG, DAILY
  34. MAGNESIUM CITRATE [Concomitant]
     Active Substance: MAGNESIUM CITRATE
     Dosage: EVERY 3RD DAY
  35. METHYLPREDNISOLONE [Concomitant]
     Active Substance: METHYLPREDNISOLONE
     Indication: Scleroderma
     Dosage: UNK
  36. PERINDOPRIL [Concomitant]
     Active Substance: PERINDOPRIL
     Indication: Hypertension
     Dosage: UNK
  37. PERINDOPRIL [Concomitant]
     Active Substance: PERINDOPRIL
     Dosage: 4 MG, DAILY IN AM
  38. SYMBICORT [Concomitant]
     Active Substance: BUDESONIDE\FORMOTEROL FUMARATE DIHYDRATE
     Dosage: 1 PUFFS TWICE DAILY
  39. SYMBICORT [Concomitant]
     Active Substance: BUDESONIDE\FORMOTEROL FUMARATE DIHYDRATE
     Dosage: 2 PUFFS TWICE DAILY (IN THE AM AND PM)
  40. CHOLECALCIFEROL [Concomitant]
     Active Substance: CHOLECALCIFEROL
     Dosage: 0.25 UG, WEEKLY
  41. CHOLECALCIFEROL [Concomitant]
     Active Substance: CHOLECALCIFEROL
     Dosage: UNK

REACTIONS (17)
  - COVID-19 [Recovered/Resolved]
  - Renal impairment [Not Recovered/Not Resolved]
  - Hyperkalaemia [Unknown]
  - Hypertension [Unknown]
  - Cataract [Unknown]
  - Heart rate decreased [Recovered/Resolved]
  - Dizziness [Recovering/Resolving]
  - Nervousness [Recovering/Resolving]
  - Oedema peripheral [Not Recovered/Not Resolved]
  - Hypotension [Unknown]
  - Blood pressure diastolic decreased [Unknown]
  - Nasopharyngitis [Unknown]
  - Diarrhoea [Unknown]
  - Malaise [Not Recovered/Not Resolved]
  - Off label use [Unknown]
  - Dyspnoea [Unknown]
  - Therapeutic product effect incomplete [Unknown]

NARRATIVE: CASE EVENT DATE: 20221117
